FAERS Safety Report 4444370-7 (Version None)
Quarter: 2004Q3

REPORT INFORMATION
  Report Type: 
  Country: None (occurrence: None)
  Receive Date: 20040802
  Receipt Date: 20040629
  Transmission Date: 20050211
  Serious: No
  Sender: FDA-Public Use
  Company Number: 2003-109477-NL

PATIENT
  Age: 29 Year
  Sex: Female
  Weight: 77.3 kg

DRUGS (9)
  1. NUVARING [Suspect]
     Dosage: DF DAILY
     Dates: start: 20030225
  2. HERBAL THYROID [Concomitant]
  3. METABOLIFE [Concomitant]
  4. PRENATAL VITAMINS [Concomitant]
  5. AMOXICILLIN [Concomitant]
  6. PEPCID [Concomitant]
  7. VICODIN [Concomitant]
  8. LOFE [Concomitant]
  9. ANTIVERT ^PFIZER^ [Concomitant]

REACTIONS (1)
  - UNINTENDED PREGNANCY [None]
